FAERS Safety Report 13022327 (Version 1)
Quarter: 2016Q4

REPORT INFORMATION
  Report Type: Spontaneous
  Country: GB (occurrence: GB)
  Receive Date: 20161213
  Receipt Date: 20161213
  Transmission Date: 20170207
  Serious: Yes (Other)
  Sender: FDA-Public Use
  Company Number: GB-TEVA-717843ACC

PATIENT
  Age: 50 Year
  Sex: Male
  Weight: 82 kg

DRUGS (4)
  1. IBUPROFEN. [Concomitant]
     Active Substance: IBUPROFEN
  2. ZONISAMIDE. [Suspect]
     Active Substance: ZONISAMIDE
     Indication: EPILEPSY
     Dosage: 400 MILLIGRAM DAILY;
     Route: 048
     Dates: end: 20161007
  3. ZONISAMIDE. [Suspect]
     Active Substance: ZONISAMIDE
     Indication: EPILEPSY
     Dosage: 300 MILLIGRAM DAILY;
     Route: 048
     Dates: start: 20160808
  4. LAMOTRIGINE. [Concomitant]
     Active Substance: LAMOTRIGINE

REACTIONS (3)
  - Glomerular filtration rate decreased [Recovering/Resolving]
  - Back pain [Unknown]
  - Acute kidney injury [Recovering/Resolving]

NARRATIVE: CASE EVENT DATE: 20160927
